FAERS Safety Report 7151469-3 (Version None)
Quarter: 2010Q4

REPORT INFORMATION
  Report Type: 
  Country: None (occurrence: None)
  Receive Date: 20101210
  Receipt Date: 20101202
  Transmission Date: 20110411
  Serious: Yes (Other)
  Sender: FDA-Public Use
  Company Number: AR-JNJFOC-20101203173

PATIENT
  Age: 40 Year
  Sex: Female

DRUGS (2)
  1. KETOCONAZOLE [Suspect]
     Indication: HYPERCORTICOIDISM
     Route: 065
  2. AMINOGLUTETHIMIDE [Suspect]
     Indication: HYPERCORTICOIDISM
     Route: 065

REACTIONS (2)
  - CUSHING'S SYNDROME [None]
  - DRUG INEFFECTIVE FOR UNAPPROVED INDICATION [None]
